FAERS Safety Report 11434237 (Version 3)
Quarter: 2015Q3

REPORT INFORMATION
  Report Type: Spontaneous
  Country: BR (occurrence: BR)
  Receive Date: 20150831
  Receipt Date: 20150924
  Transmission Date: 20151125
  Serious: Yes (Death, Hospitalization)
  Sender: FDA-Public Use
  Company Number: BR-SA-2015SA128471

PATIENT
  Age: 42 Year
  Sex: Female

DRUGS (1)
  1. LEMTRADA [Suspect]
     Active Substance: ALEMTUZUMAB
     Indication: MULTIPLE SCLEROSIS
     Route: 065
     Dates: start: 20150622

REACTIONS (6)
  - Urinary retention [Recovering/Resolving]
  - Pneumonia [Recovering/Resolving]
  - Tachypnoea [Recovering/Resolving]
  - Oxygen saturation decreased [Recovering/Resolving]
  - Pyrexia [Recovering/Resolving]
  - Death [Fatal]

NARRATIVE: CASE EVENT DATE: 2015
